FAERS Safety Report 19734656 (Version 2)
Quarter: 2021Q3

REPORT INFORMATION
  Report Type: Spontaneous
  Country: US (occurrence: US)
  Receive Date: 20210823
  Receipt Date: 20210930
  Transmission Date: 20211014
  Serious: No
  Sender: FDA-Public Use
  Company Number: US-ASTRAZENECA-2021A664972

PATIENT
  Age: 53 Year
  Sex: Female
  Weight: 108.9 kg

DRUGS (1)
  1. BYDUREON BCISE [Suspect]
     Active Substance: EXENATIDE
     Indication: DIABETES MELLITUS
     Route: 058
     Dates: start: 2021

REACTIONS (5)
  - Incorrect dose administered by device [Recovered/Resolved]
  - Visual impairment [Not Recovered/Not Resolved]
  - Device leakage [Unknown]
  - Needle issue [Unknown]
  - Injection site erythema [Recovering/Resolving]

NARRATIVE: CASE EVENT DATE: 2021
